FAERS Safety Report 25956792 (Version 1)
Quarter: 2025Q4

REPORT INFORMATION
  Report Type: Spontaneous
  Country: US (occurrence: None)
  Receive Date: 20251023
  Receipt Date: 20251023
  Transmission Date: 20260117
  Serious: No
  Sender: FDA-CTU
  Company Number: None

PATIENT

DRUGS (2)
  1. OCREVUS [Suspect]
     Active Substance: OCRELIZUMAB
  2. COPAXONE [Suspect]
     Active Substance: GLATIRAMER ACETATE

REACTIONS (4)
  - Therapy non-responder [None]
  - Multiple sclerosis [None]
  - Memory impairment [None]
  - Muscular weakness [None]
